FAERS Safety Report 8049479-7 (Version None)
Quarter: 2011Q4

REPORT INFORMATION
  Report Type: 
  Country: None (occurrence: None)
  Receive Date: 20111209
  Receipt Date: 20110922
  Transmission Date: 20120403
  Serious: No
  Sender: FDA-Public Use
  Company Number: TH-2011-00384

PATIENT
  Sex: Male

DRUGS (2)
  1. ACTOPLUS-MET (METFORMIN HYDROCHLORIDE, PIOGLITAZONE HYDROCHLORIDE) [Concomitant]
  2. EGRIFTA [Suspect]
     Indication: PRODUCT USED FOR UNKNOWN INDICATION
     Dosage: 1 IN 1 D
     Dates: start: 20110801

REACTIONS (4)
  - BLOOD GLUCOSE INCREASED [None]
  - OEDEMA PERIPHERAL [None]
  - JOINT SWELLING [None]
  - INCORRECT DOSE ADMINISTERED [None]
